FAERS Safety Report 5301945-0 (Version None)
Quarter: 2007Q2

REPORT INFORMATION
  Report Type: 
  Country: None (occurrence: None)
  Receive Date: 20070416
  Receipt Date: 20070416
  Transmission Date: 20071010
  Serious: Yes (Hospitalization, Other)
  Sender: FDA-Public Use
  Company Number: None

PATIENT
  Age: 84 Year
  Sex: Male
  Weight: 102 kg

DRUGS (1)
  1. LOVENOX [Suspect]
     Dosage: 90 MG SQ BID

REACTIONS (1)
  - ABDOMINAL HAEMATOMA [None]
